FAERS Safety Report 7788049-2 (Version None)
Quarter: 2011Q3

REPORT INFORMATION
  Report Type: 
  Country: None (occurrence: None)
  Receive Date: 20110927
  Receipt Date: 20110916
  Transmission Date: 20111222
  Serious: Yes (Other)
  Sender: FDA-Public Use
  Company Number: DSA_47536_2011

PATIENT
  Sex: Female

DRUGS (2)
  1. EFFEXOR [Suspect]
     Indication: PRODUCT USED FOR UNKNOWN INDICATION
     Dosage: 150 MG, DAILY ORAL
     Route: 048
     Dates: start: 20110101, end: 20110820
  2. WELLBUTRIN [Suspect]
     Indication: PRODUCT USED FOR UNKNOWN INDICATION
     Dosage: DF ORAL
     Route: 048
     Dates: start: 20110101, end: 20110820

REACTIONS (6)
  - SECRETION DISCHARGE [None]
  - SCAB [None]
  - SKIN LESION [None]
  - VISUAL IMPAIRMENT [None]
  - PAIN [None]
  - RASH PRURITIC [None]
